FAERS Safety Report 9974946 (Version 1)
Quarter: 2014Q1

REPORT INFORMATION
  Report Type: Report from Study
  Country: US (occurrence: US)
  Receive Date: 20140306
  Receipt Date: 20140306
  Transmission Date: 20141002
  Serious: No
  Sender: FDA-Public Use
  Company Number: US-ABBVIE-13P-163-1159920-00

PATIENT
  Sex: Female

DRUGS (8)
  1. HUMIRA [Suspect]
     Indication: CROHN^S DISEASE
     Dates: start: 20120514
  2. VITAMIN B12 [Concomitant]
     Indication: CROHN^S DISEASE
     Dosage: SHOTS FOR 10 YEARS
  3. ZESTRIL [Concomitant]
     Indication: HYPERTENSION
  4. QUESTRAN [Concomitant]
     Indication: CROHN^S DISEASE
     Dosage: POWDER 4 GRAM/DAY (10 YEARS)
  5. WOMEN^S ONCE A DAY VITAMIN [Concomitant]
     Indication: PRODUCT USED FOR UNKNOWN INDICATION
  6. CALCIUM [Concomitant]
     Indication: PRODUCT USED FOR UNKNOWN INDICATION
     Dosage: 2 TABLETS PER DAY
  7. TRICOR [Concomitant]
     Indication: BLOOD TRIGLYCERIDES
  8. FOSAMAX [Concomitant]
     Indication: BONE DISORDER

REACTIONS (1)
  - Alopecia [Not Recovered/Not Resolved]
